FAERS Safety Report 5285652-9 (Version None)
Quarter: 2007Q1

REPORT INFORMATION
  Report Type: 
  Country: None (occurrence: None)
  Receive Date: 20070116
  Receipt Date: 20061201
  Transmission Date: 20070707
  Serious: No
  Sender: FDA-Public Use
  Company Number: 2006SP004237

PATIENT
  Age: 72 Year
  Sex: Male
  Weight: 90.7194 kg

DRUGS (12)
  1. LUNESTA [Suspect]
     Indication: BEREAVEMENT REACTION
     Dosage: SEE IMAGE
     Route: 048
     Dates: start: 20061129, end: 20061129
  2. LUNESTA [Suspect]
     Indication: INSOMNIA
     Dosage: SEE IMAGE
     Route: 048
     Dates: start: 20061129, end: 20061129
  3. LUNESTA [Suspect]
     Indication: BEREAVEMENT REACTION
     Dosage: SEE IMAGE
     Route: 048
     Dates: start: 20061129, end: 20061129
  4. LUNESTA [Suspect]
     Indication: INSOMNIA
     Dosage: SEE IMAGE
     Route: 048
     Dates: start: 20061129, end: 20061129
  5. LUNESTA [Suspect]
     Indication: BEREAVEMENT REACTION
     Dosage: SEE IMAGE
     Route: 048
     Dates: start: 20061130, end: 20061130
  6. LUNESTA [Suspect]
     Indication: INSOMNIA
     Dosage: SEE IMAGE
     Route: 048
     Dates: start: 20061130, end: 20061130
  7. LUNESTA [Suspect]
     Indication: BEREAVEMENT REACTION
     Dosage: SEE IMAGE
     Route: 048
     Dates: start: 20061130, end: 20061130
  8. LUNESTA [Suspect]
     Indication: INSOMNIA
     Dosage: SEE IMAGE
     Route: 048
     Dates: start: 20061130, end: 20061130
  9. LEXAPRO [Suspect]
     Indication: DEPRESSION
     Dosage: ORAL
     Route: 048
     Dates: start: 20061129
  10. AMBIEN [Concomitant]
  11. LEXAPRO [Concomitant]
  12. PAXIL [Concomitant]

REACTIONS (1)
  - INSOMNIA [None]
